FAERS Safety Report 9297486 (Version 1)
Quarter: 2013Q2

REPORT INFORMATION
  Report Type: Spontaneous
  Country: US (occurrence: None)
  Receive Date: 20130517
  Receipt Date: 20130517
  Transmission Date: 20140414
  Serious: Yes (Life-Threatening, Disabling)
  Sender: FDA-Public Use
  Company Number: None

PATIENT
  Age: 32 Year
  Sex: Female
  Weight: 83.92 kg

DRUGS (2)
  1. TRUVADA [Suspect]
     Indication: HIV TEST POSITIVE
     Route: 048
     Dates: start: 20110415, end: 20130515
  2. TRUVADA [Concomitant]

REACTIONS (1)
  - Osteonecrosis [None]
